FAERS Safety Report 9805193 (Version 1)
Quarter: 2014Q1

REPORT INFORMATION
  Report Type: Spontaneous
  Country: CL (occurrence: CL)
  Receive Date: 20140109
  Receipt Date: 20140109
  Transmission Date: 20141002
  Serious: Yes (Hospitalization)
  Sender: FDA-Public Use
  Company Number: CL-MERCK-1401CHL001516

PATIENT
  Sex: 0

DRUGS (1)
  1. PEG-INTRON REDIPEN [Suspect]
     Indication: HEPATITIS C
     Dosage: 0.45 ML, UNK, PREFILLED PEN
     Route: 058

REACTIONS (2)
  - Adverse event [Unknown]
  - Drug dose omission [Unknown]
